FAERS Safety Report 20571086 (Version 4)
Quarter: 2023Q4

REPORT INFORMATION
  Report Type: Spontaneous
  Country: US (occurrence: US)
  Receive Date: 20220309
  Receipt Date: 20231031
  Transmission Date: 20240110
  Serious: No
  Sender: FDA-Public Use
  Company Number: US-PHARMAESSENTIA CORPORATION-US-2022-PEC-000468

PATIENT
  Sex: Female

DRUGS (14)
  1. BESREMI [Suspect]
     Active Substance: ROPEGINTERFERON ALFA-2B-NJFT
     Indication: Myeloproliferative neoplasm
     Dosage: 100 MICROGRAM, Q2W
     Route: 058
     Dates: start: 20211230
  2. BESREMI [Suspect]
     Active Substance: ROPEGINTERFERON ALFA-2B-NJFT
     Dosage: 100 MICROGRAM, Q2W
     Route: 058
     Dates: start: 20220113
  3. BESREMI [Suspect]
     Active Substance: ROPEGINTERFERON ALFA-2B-NJFT
     Dosage: 100 MICROGRAM, ONCE EVERY 2 WEEKS
     Route: 058
     Dates: start: 20220210, end: 20220519
  4. BESREMI [Suspect]
     Active Substance: ROPEGINTERFERON ALFA-2B-NJFT
     Dosage: UNK
     Route: 058
  5. ASPIRIN [Concomitant]
     Active Substance: ASPIRIN
     Indication: Product used for unknown indication
     Dosage: 81 MG
     Route: 048
  6. ALLOPURINOL [Concomitant]
     Active Substance: ALLOPURINOL
     Indication: Product used for unknown indication
     Dosage: 100 MG
     Route: 048
  7. NORVASC [Concomitant]
     Active Substance: AMLODIPINE BESYLATE
     Indication: Product used for unknown indication
     Dosage: 5 MG
     Route: 048
  8. HYDROCHLOROTHIAZIDE [Concomitant]
     Active Substance: HYDROCHLOROTHIAZIDE
     Indication: Product used for unknown indication
     Dosage: 12.5 MG
     Route: 048
  9. LOSARTAN POTASSIUM [Concomitant]
     Active Substance: LOSARTAN POTASSIUM
     Indication: Product used for unknown indication
     Dosage: 100 MG
     Route: 048
  10. METFORMIN [Concomitant]
     Active Substance: METFORMIN HYDROCHLORIDE
     Indication: Product used for unknown indication
     Dosage: 1000 MG
     Route: 048
  11. INDERAL [Concomitant]
     Active Substance: PROPRANOLOL HYDROCHLORIDE
     Indication: Product used for unknown indication
     Dosage: 120 MG
     Route: 048
  12. DOCONEXENT\ICOSAPENT\TOCOPHEROL [Concomitant]
     Active Substance: DOCONEXENT\ICOSAPENT\TOCOPHEROL
     Indication: Product used for unknown indication
     Dosage: UNK
     Route: 065
  13. CETIRIZINE HCL [Concomitant]
     Active Substance: CETIRIZINE HYDROCHLORIDE
     Indication: Product used for unknown indication
     Dosage: 10 MILLIGRAM
     Route: 048
  14. ZYRTEC [Concomitant]
     Active Substance: CETIRIZINE HYDROCHLORIDE
     Indication: Product used for unknown indication
     Dosage: 10 MG
     Route: 065

REACTIONS (5)
  - Incorrect dose administered [Unknown]
  - Dizziness [Unknown]
  - Diarrhoea [Recovering/Resolving]
  - Faeces soft [Recovered/Resolved]
  - Fatigue [Unknown]

NARRATIVE: CASE EVENT DATE: 20220113
